FAERS Safety Report 10365601 (Version 1)
Quarter: 2014Q3

REPORT INFORMATION
  Report Type: Spontaneous
  Country: RS (occurrence: RS)
  Receive Date: 20140806
  Receipt Date: 20140806
  Transmission Date: 20150326
  Serious: Yes (Other)
  Sender: FDA-Public Use
  Company Number: RS-ACTAVIS-2014-16784

PATIENT
  Age: 47 Year
  Sex: Female
  Weight: 77 kg

DRUGS (5)
  1. SINOXAL [Suspect]
     Active Substance: OXALIPLATIN
     Indication: RECTAL CANCER
     Dosage: 85MG/M2
     Route: 042
     Dates: start: 20140701, end: 20140701
  2. PRESSING [Concomitant]
     Indication: PROPHYLACTIC CHEMOTHERAPY
     Dosage: 10 MG, DAILY
     Route: 048
     Dates: start: 20140627, end: 20140630
  3. RANITIDIN [Concomitant]
     Active Substance: RANITIDINE HYDROCHLORIDE
     Indication: PROPHYLACTIC CHEMOTHERAPY
     Dosage: 50 MG, TOTAL
     Route: 042
     Dates: start: 20140701, end: 20140701
  4. DEXASON                            /00016001/ [Concomitant]
     Indication: PROPHYLACTIC CHEMOTHERAPY
     Dosage: 8 MG, TOTAL
     Route: 042
     Dates: start: 20140701, end: 20140701
  5. KYTRIL [Concomitant]
     Active Substance: GRANISETRON HYDROCHLORIDE
     Indication: PROPHYLACTIC CHEMOTHERAPY
     Dosage: 1 MG, DAILY
     Route: 042
     Dates: start: 20140701, end: 20140701

REACTIONS (10)
  - Dizziness [Recovered/Resolved]
  - Diarrhoea [Recovered/Resolved]
  - Hyperhidrosis [Recovered/Resolved]
  - Dyspnoea [Recovered/Resolved]
  - Tachycardia [Recovered/Resolved]
  - Loss of consciousness [Recovered/Resolved]
  - Abdominal pain [Recovered/Resolved]
  - Asthenia [Recovered/Resolved]
  - Suffocation feeling [Recovered/Resolved]
  - Defaecation urgency [Recovered/Resolved]

NARRATIVE: CASE EVENT DATE: 20140701
